FAERS Safety Report 9316206 (Version 1)
Quarter: 2013Q2

REPORT INFORMATION
  Report Type: Spontaneous
  Country: US (occurrence: None)
  Receive Date: 20130528
  Receipt Date: 20130528
  Transmission Date: 20140414
  Serious: Yes (Hospitalization)
  Sender: FDA-Public Use
  Company Number: None

PATIENT
  Age: 66 Year
  Sex: Male
  Weight: 85.2 kg

DRUGS (1)
  1. ALLOPURINOL [Suspect]
     Indication: GOUT
     Route: 048
     Dates: start: 20081124, end: 20130503

REACTIONS (2)
  - Vasculitis necrotising [None]
  - Peripheral ischaemia [None]
